FAERS Safety Report 21138984 (Version 1)
Quarter: 2022Q3

REPORT INFORMATION
  Report Type: Spontaneous
  Country: IT (occurrence: IT)
  Receive Date: 20220727
  Receipt Date: 20220727
  Transmission Date: 20221027
  Serious: Yes (Other)
  Sender: FDA-Public Use
  Company Number: None

PATIENT
  Age: 30 Year
  Sex: Female

DRUGS (7)
  1. SERTRALINE [Interacting]
     Active Substance: SERTRALINE HYDROCHLORIDE
     Indication: Major depression
     Dosage: 200 MILLIGRAM
     Route: 048
  2. FLUOXETINE [Interacting]
     Active Substance: FLUOXETINE HYDROCHLORIDE
     Indication: Major depression
     Dosage: 5 MILLILITER, QD (FLUOXETINE: 5ML / DAY CORRESPOND TO 20MG / DAY)
     Route: 048
     Dates: start: 20220214, end: 20220308
  3. RIVOTRIL [Interacting]
     Active Substance: CLONAZEPAM
     Indication: Major depression
     Dosage: 10 GTT DROPS
     Route: 065
  4. LYRICA [Interacting]
     Active Substance: PREGABALIN
     Indication: Major depression
     Dosage: 75 MILLIGRAM
     Route: 048
  5. TRAZODONE HYDROCHLORIDE [Interacting]
     Active Substance: TRAZODONE HYDROCHLORIDE
     Indication: Major depression
     Dosage: 100 MILLIGRAM
     Route: 048
  6. REBOXETINE [Interacting]
     Active Substance: REBOXETINE
     Indication: Major depression
     Dosage: 8 MILLIGRAM
     Route: 048
  7. TIZANIDINE [Concomitant]
     Active Substance: TIZANIDINE
     Dosage: UNK
     Route: 065

REACTIONS (4)
  - Presyncope [Recovering/Resolving]
  - Asthenia [Recovering/Resolving]
  - Drug interaction [Recovering/Resolving]
  - Overdose [Recovered/Resolved]

NARRATIVE: CASE EVENT DATE: 20220301
